APPROVED DRUG PRODUCT: CORTENEMA
Active Ingredient: HYDROCORTISONE
Strength: 100MG/60ML
Dosage Form/Route: ENEMA;RECTAL
Application: N016199 | Product #001 | TE Code: AB
Applicant: ANI PHARMACEUTICALS INC
Approved: Approved Prior to Jan 1, 1982 | RLD: Yes | RS: Yes | Type: RX